FAERS Safety Report 8513094-9 (Version None)
Quarter: 2012Q3

REPORT INFORMATION
  Report Type: 
  Country: None (occurrence: None)
  Receive Date: 20120716
  Receipt Date: 20120709
  Transmission Date: 20120928
  Serious: Yes (Hospitalization, Other)
  Sender: FDA-Public Use
  Company Number: BR-PFIZER INC-2012164848

PATIENT
  Age: 86 Year
  Sex: Male

DRUGS (5)
  1. CEBRALAT [Concomitant]
     Indication: TYPE 2 DIABETES MELLITUS
     Dosage: 50 MG, 1X/DAY
  2. NORVASC [Concomitant]
     Indication: ISCHAEMIA
  3. TIMOLOL MALEATE [Concomitant]
     Indication: GLAUCOMA
     Dosage: 1 DROP IN EACH EYE ONCE DAILY
  4. NORVASC [Concomitant]
     Indication: STENT PLACEMENT
     Dosage: 2.5 MG, 1X/DAY
     Dates: start: 19970101
  5. XALATAN [Suspect]
     Indication: GLAUCOMA
     Dosage: 3 UG, 1X/DAY (1 DROP IN EACH EYE ONCE DAILY)
     Route: 047

REACTIONS (2)
  - CEREBROVASCULAR ACCIDENT [None]
  - CORONARY ARTERY DISEASE [None]
